FAERS Safety Report 18940554 (Version 1)
Quarter: 2021Q1

REPORT INFORMATION
  Report Type: Spontaneous
  Country: US (occurrence: US)
  Receive Date: 20210225
  Receipt Date: 20210225
  Transmission Date: 20210420
  Serious: Yes (Hospitalization)
  Sender: FDA-Public Use
  Company Number: None

PATIENT
  Age: 64 Year
  Sex: Female
  Weight: 68.49 kg

DRUGS (6)
  1. TAMSULOSIN [Concomitant]
     Active Substance: TAMSULOSIN
  2. FINASTERIDE. [Concomitant]
     Active Substance: FINASTERIDE
  3. PREDNISONE. [Concomitant]
     Active Substance: PREDNISONE
  4. RENA VITE RX [Concomitant]
  5. ENTYVIO [Suspect]
     Active Substance: VEDOLIZUMAB
     Indication: PROSTATE CANCER
     Route: 048
     Dates: start: 20200819, end: 20210205
  6. BICALUTAMIDE. [Concomitant]
     Active Substance: BICALUTAMIDE

REACTIONS (1)
  - Death [None]

NARRATIVE: CASE EVENT DATE: 20201118
